FAERS Safety Report 7459006-0 (Version None)
Quarter: 2011Q2

REPORT INFORMATION
  Report Type: 
  Country: None (occurrence: None)
  Receive Date: 20110505
  Receipt Date: 20110426
  Transmission Date: 20111010
  Serious: Yes (Other)
  Sender: FDA-Public Use
  Company Number: US-BIOGENIDEC-2011BI006179

PATIENT
  Age: 29 Year
  Sex: Female

DRUGS (3)
  1. TYSABRI [Suspect]
     Indication: MULTIPLE SCLEROSIS
     Route: 042
     Dates: start: 20080111, end: 20101209
  2. PEPCID AC [Concomitant]
     Indication: GASTROOESOPHAGEAL REFLUX DISEASE
     Dates: start: 20100601
  3. PRENATAL VITAMINS [Concomitant]

REACTIONS (2)
  - PREGNANCY [None]
  - ABORTION SPONTANEOUS [None]
